FAERS Safety Report 13588254 (Version 1)
Quarter: 2017Q2

REPORT INFORMATION
  Report Type: Report from Study
  Country: CA (occurrence: CA)
  Receive Date: 20170528
  Receipt Date: 20170528
  Transmission Date: 20170830
  Serious: Yes (Hospitalization, Other)
  Sender: FDA-Public Use
  Company Number: CA-BEH-2017080626

PATIENT
  Sex: Female

DRUGS (1)
  1. HIZENTRA [Suspect]
     Active Substance: HUMAN IMMUNOGLOBULIN G
     Indication: PRIMARY IMMUNODEFICIENCY SYNDROME
     Dosage: 6 G, QW
     Route: 058
     Dates: start: 20140717

REACTIONS (4)
  - Ill-defined disorder [Unknown]
  - Haemorrhage [Unknown]
  - Drug ineffective [Unknown]
  - Contusion [Unknown]
